FAERS Safety Report 16024094 (Version 1)
Quarter: 2019Q1

REPORT INFORMATION
  Report Type: Spontaneous
  Country: US (occurrence: US)
  Receive Date: 20190301
  Receipt Date: 20190301
  Transmission Date: 20190418
  Serious: No
  Sender: FDA-Public Use
  Company Number: US-JNJFOC-20190200690

PATIENT
  Age: 4 Decade
  Sex: Male
  Weight: 97.52 kg

DRUGS (2)
  1. MENS ROGAINE EXTRA STRENGTH [Suspect]
     Active Substance: MINOXIDIL
     Route: 061
  2. MENS ROGAINE EXTRA STRENGTH [Suspect]
     Active Substance: MINOXIDIL
     Indication: ALOPECIA
     Dosage: OCCASIONALLY ONCE DAILY DOSAGE
     Route: 061
     Dates: start: 201811

REACTIONS (4)
  - Eye pruritus [Recovering/Resolving]
  - Off label use [Unknown]
  - Dry eye [Recovering/Resolving]
  - Product use in unapproved indication [Unknown]

NARRATIVE: CASE EVENT DATE: 2018
